FAERS Safety Report 13009976 (Version 1)
Quarter: 2016Q4

REPORT INFORMATION
  Report Type: Spontaneous
  Country: JP (occurrence: JP)
  Receive Date: 20161208
  Receipt Date: 20161208
  Transmission Date: 20170207
  Serious: Yes (Death, Hospitalization)
  Sender: FDA-Public Use
  Company Number: JP-BAYER-2016-155215

PATIENT
  Age: 78 Year
  Sex: Female
  Weight: 41.2 kg

DRUGS (5)
  1. STIVARGA [Suspect]
     Active Substance: REGORAFENIB
     Indication: COLON CANCER
     Dosage: 120 MG, QD
     Route: 048
     Dates: start: 20160816, end: 20160901
  2. HIRUDOID [Concomitant]
     Active Substance: GLYCOSAMINOGLYCANS
     Indication: DRUG TOXICITY PROPHYLAXIS
     Dosage: UNK
     Route: 061
     Dates: start: 20160803, end: 20160901
  3. HERBAL NOS [Concomitant]
     Active Substance: HERBALS
     Dosage: DAILY DOSE 15 G
     Route: 048
  4. MAGLAX [Concomitant]
     Active Substance: MAGNESIUM OXIDE
     Dosage: DAILY DOSE 990 MG
     Route: 048
  5. STIVARGA [Suspect]
     Active Substance: REGORAFENIB
     Indication: COLON CANCER
     Dosage: 160 MG, QD (ON FOR 3 WEEKS AND OFF FOR 1 WEEK)
     Route: 048
     Dates: start: 20160803, end: 20160805

REACTIONS (14)
  - Platelet count decreased [Unknown]
  - C-reactive protein increased [Not Recovered/Not Resolved]
  - Blood alkaline phosphatase increased [None]
  - Hypothyroidism [Unknown]
  - Tumour necrosis [Recovered/Resolved]
  - Fall [None]
  - Pyrexia [Not Recovered/Not Resolved]
  - Blood bilirubin increased [Not Recovered/Not Resolved]
  - Gamma-glutamyltransferase increased [None]
  - Blood lactate dehydrogenase increased [Not Recovered/Not Resolved]
  - Aspartate aminotransferase increased [None]
  - Alanine aminotransferase increased [None]
  - Subarachnoid haemorrhage [Fatal]
  - Skull fracture [None]

NARRATIVE: CASE EVENT DATE: 20160805
